FAERS Safety Report 12621575 (Version 1)
Quarter: 2016Q3

REPORT INFORMATION
  Report Type: Spontaneous
  Country: IT (occurrence: IT)
  Receive Date: 20160804
  Receipt Date: 20160804
  Transmission Date: 20161109
  Serious: Yes (Other)
  Sender: FDA-Public Use
  Company Number: IT-AUROBINDO-AUR-APL-2016-09980

PATIENT
  Age: 38 Year
  Sex: Male
  Weight: 78 kg

DRUGS (1)
  1. OMEPRAZOLE. [Suspect]
     Active Substance: OMEPRAZOLE
     Indication: REFLUX GASTRITIS
     Dosage: 40 MG, AS NECESSARY
     Route: 065
     Dates: start: 20160610, end: 20160610

REACTIONS (3)
  - Rash [Recovered/Resolved]
  - Syncope [Recovered/Resolved]
  - Pyrexia [Recovered/Resolved]

NARRATIVE: CASE EVENT DATE: 20160610
